FAERS Safety Report 16859436 (Version 3)
Quarter: 2019Q4

REPORT INFORMATION
  Report Type: Spontaneous
  Country: US (occurrence: US)
  Receive Date: 20190927
  Receipt Date: 20191206
  Transmission Date: 20200122
  Serious: No
  Sender: FDA-Public Use
  Company Number: US-009507513-1909USA009540

PATIENT
  Sex: Female

DRUGS (5)
  1. ASMANEX [Suspect]
     Active Substance: MOMETASONE FUROATE
     Dosage: ONE PUFF A DAY (BY MOUTH AND INHALE)
     Dates: start: 201909
  2. ASMANEX [Suspect]
     Active Substance: MOMETASONE FUROATE
     Indication: ASTHMA
     Dosage: ONE PUFF A DAY (BY MOUTH AND INHALE)
  3. ASMANEX [Suspect]
     Active Substance: MOMETASONE FUROATE
     Dosage: ONCE A DAY A NIGHT TIME, 30 METER DOSES
     Dates: start: 2019, end: 20191113
  4. ASMANEX HFA [Suspect]
     Active Substance: MOMETASONE FUROATE
     Dosage: 100 MCG FOR ONE DAY
     Dates: start: 20191114
  5. PROAIR HFA [Concomitant]
     Active Substance: ALBUTEROL SULFATE
     Dosage: IF NEEDED A RESCUE INHALER

REACTIONS (7)
  - Product quality issue [Unknown]
  - Poor quality device used [Unknown]
  - Sinus disorder [Recovering/Resolving]
  - Chest discomfort [Recovering/Resolving]
  - Hypersensitivity [Recovering/Resolving]
  - Incorrect dose administered [Unknown]
  - Circumstance or information capable of leading to medication error [Unknown]

NARRATIVE: CASE EVENT DATE: 2019
